FAERS Safety Report 5465332-7 (Version None)
Quarter: 2007Q3

REPORT INFORMATION
  Report Type: 
  Country: None (occurrence: None)
  Receive Date: 20070924
  Receipt Date: 20070827
  Transmission Date: 20080115
  Serious: No
  Sender: FDA-Public Use
  Company Number: GB-BAXTER-2007BH007392

PATIENT
  Age: 58 Year
  Sex: Male

DRUGS (1)
  1. EXTRANEAL [Suspect]
     Indication: RENAL FAILURE CHRONIC
     Dosage: DOSE UNIT:UNKNOWN
     Route: 033

REACTIONS (2)
  - DEVICE INTERACTION [None]
  - HYPOGLYCAEMIA [None]
